FAERS Safety Report 10385698 (Version 1)
Quarter: 2014Q3

REPORT INFORMATION
  Report Type: Spontaneous
  Country: GB (occurrence: None)
  Receive Date: 20140812
  Receipt Date: 20140812
  Transmission Date: 20150326
  Serious: Yes (Disabling)
  Sender: FDA-Public Use
  Company Number: NL01PV14.36783

PATIENT
  Age: 49 Year
  Sex: Male
  Weight: 73 kg

DRUGS (2)
  1. UNKNOWN (DOXAZOSIN)TABLET [Concomitant]
  2. UNKNOWN (TAMSULOSIN)UNKNOWN [Suspect]
     Active Substance: TAMSULOSIN
     Dates: start: 20140529

REACTIONS (2)
  - Dizziness [None]
  - Joint stiffness [None]

NARRATIVE: CASE EVENT DATE: 20140724
